FAERS Safety Report 7150879-8 (Version None)
Quarter: 2010Q4

REPORT INFORMATION
  Report Type: 
  Country: None (occurrence: None)
  Receive Date: 20101210
  Receipt Date: 20101130
  Transmission Date: 20110411
  Serious: Yes (Hospitalization, Other)
  Sender: FDA-Public Use
  Company Number: FR-ROCHE-745993

PATIENT
  Sex: Male
  Weight: 60 kg

DRUGS (10)
  1. RIBAVIRIN [Suspect]
     Dosage: LAST DOSE PRIOR TO SAE: 17 NOVEMBER 2010
     Route: 048
     Dates: start: 20100607
  2. PEGINTERFERON ALFA-2A [Suspect]
     Dosage: LAST DOSE PRIOR TO SAE: 17 NOVEMBER 2010
     Route: 058
     Dates: start: 20100607
  3. EPOETIN BETA [Suspect]
     Dosage: DOSE: 3000 UI
     Route: 058
  4. XATRAL [Concomitant]
     Dosage: DRUG NAME REPORTED AS XATRAL LP 10 MG
  5. ZOFENIL [Concomitant]
     Dosage: DRUG NAME REPORTED AS ZAFENIL 15 MG
  6. ALFUZOSINE [Concomitant]
     Dosage: DRUG NAME REPORTED AS ALFUZOSINE LP 10 MG
  7. MUCOMYST [Concomitant]
  8. IMOVANE [Concomitant]
  9. CONTRAMAL [Concomitant]
  10. MOXIFLOXACIN HCL [Concomitant]

REACTIONS (2)
  - ANAEMIA [None]
  - PREDISPOSITION TO DISEASE [None]
